FAERS Safety Report 4628774-5 (Version None)
Quarter: 2005Q2

REPORT INFORMATION
  Report Type: 
  Country: None (occurrence: None)
  Receive Date: 20050406
  Receipt Date: 20050321
  Transmission Date: 20051028
  Serious: Yes (Disabling)
  Sender: FDA-Public Use
  Company Number: DEU-2005-0001311

PATIENT
  Age: 45 Year
  Sex: Male
  Weight: 94 kg

DRUGS (3)
  1. MORPHINE SULFATE [Suspect]
     Indication: PAIN
     Dosage: 100 MG, QID, ORAL
     Route: 048
  2. MORPHINE [Suspect]
     Indication: PAIN
     Dosage: PRN, ORAL
     Route: 048
  3. VIANI (FLUCTICASONE PROPIONATE) [Concomitant]

REACTIONS (6)
  - BRONCHITIS [None]
  - BRONCHOSPASM [None]
  - DISEASE RECURRENCE [None]
  - DYSPNOEA [None]
  - EMPHYSEMA [None]
  - PNEUMONIA [None]
